FAERS Safety Report 17626685 (Version 1)
Quarter: 2020Q2

REPORT INFORMATION
  Report Type: Report from Study
  Country: US (occurrence: US)
  Receive Date: 20200405
  Receipt Date: 20200405
  Transmission Date: 20200713
  Serious: Yes (Other)
  Sender: FDA-Public Use
  Company Number: US-B.I. PHARMACEUTICALS,INC./RIDGEFIELD-2020-BI-017020

PATIENT
  Age: 62 Year
  Sex: Female

DRUGS (2)
  1. AFATINIB [Suspect]
     Active Substance: AFATINIB
     Indication: ADENOCARCINOMA
     Route: 065
  2. OSIMERTINIB. [Concomitant]
     Active Substance: OSIMERTINIB
     Indication: PRODUCT USED FOR UNKNOWN INDICATION
     Route: 065

REACTIONS (1)
  - Malignant neoplasm progression [Unknown]
